FAERS Safety Report 9723605 (Version 3)
Quarter: 2013Q4

REPORT INFORMATION
  Report Type: Report from Study
  Country: KR (occurrence: KR)
  Receive Date: 20131202
  Receipt Date: 20131223
  Transmission Date: 20140711
  Serious: Yes (Other)
  Sender: FDA-Public Use
  Company Number: PHHY2013KR139438

PATIENT
  Age: 53 Year
  Sex: Female

DRUGS (9)
  1. AMN107 [Suspect]
     Indication: CHRONIC MYELOID LEUKAEMIA
     Dosage: 600 MG, PER DAY
     Route: 048
     Dates: start: 20120905, end: 20121115
  2. AMN107 [Suspect]
     Dosage: 300 MG, PER DAY
     Route: 048
     Dates: start: 20121116, end: 20121116
  3. AMN107 [Suspect]
     Dosage: 600 MG, PER DAY
     Route: 048
     Dates: start: 20121117
  4. LEVOTHYROXINE [Concomitant]
     Indication: HYPERTHYROIDISM
     Dosage: 50 UG, UNK
     Route: 048
     Dates: start: 20130118, end: 20130728
  5. PROPAFENONE [Concomitant]
     Indication: ATRIAL FIBRILLATION
     Dosage: 300 MG, UNK
     Route: 049
     Dates: start: 20130117, end: 20130717
  6. ZOLPIDEM [Concomitant]
     Indication: INSOMNIA
     Dosage: 6.25 MG, UNK
     Route: 048
     Dates: start: 20121112, end: 20121120
  7. BUPROPION [Concomitant]
     Indication: DEPRESSION
     Dosage: 150 MG, UNK
     Route: 048
     Dates: start: 20121108, end: 20130510
  8. ATENOLOL [Concomitant]
     Indication: ATRIAL FIBRILLATION
     Dosage: 25 MG, UNK
     Route: 048
     Dates: start: 20121101, end: 20121128
  9. ESCITALOPRAM [Concomitant]
     Indication: DEPRESSION
     Dosage: 10 MG, UNK
     Route: 048
     Dates: start: 20121101, end: 20130510

REACTIONS (1)
  - Anxiety [Recovered/Resolved]
